FAERS Safety Report 17356195 (Version 1)
Quarter: 2020Q1

REPORT INFORMATION
  Report Type: Spontaneous
  Country: BR (occurrence: BR)
  Receive Date: 20200131
  Receipt Date: 20200131
  Transmission Date: 20200409
  Serious: Yes (Other)
  Sender: FDA-Public Use
  Company Number: BR-UCBSA-2020003374

PATIENT
  Age: 42 Year
  Sex: Female
  Weight: 52 kg

DRUGS (13)
  1. PARACETAMOL [Concomitant]
     Active Substance: ACETAMINOPHEN
     Indication: PAIN IN EXTREMITY
     Dosage: 750 MILLIGRAM, ONCE DAILY (QD)
     Route: 048
     Dates: start: 20200111, end: 20200111
  2. LEVOID [Concomitant]
     Active Substance: LEVOTHYROXINE
     Indication: THYROID DISORDER
     Dosage: 25 MILLIGRAM, ONCE DAILY (QD)
     Route: 048
     Dates: start: 2016
  3. SERTRALINE HYDROCHLORIDE. [Concomitant]
     Active Substance: SERTRALINE HYDROCHLORIDE
     Indication: DEPRESSION
  4. PARACETAMOL [Concomitant]
     Active Substance: ACETAMINOPHEN
     Indication: HEADACHE
     Dosage: 750 MILLIGRAM, ONCE DAILY (QD)
     Route: 048
     Dates: start: 20200117
  5. CIMZIA [Suspect]
     Active Substance: CERTOLIZUMAB PEGOL
     Indication: RHEUMATOID ARTHRITIS
     Dosage: UNK
     Route: 058
     Dates: start: 201901, end: 2019
  6. MIRA [MIRTAZAPINE] [Concomitant]
     Indication: HEADACHE
  7. METHOTREXATE. [Concomitant]
     Active Substance: METHOTREXATE
     Indication: HEADACHE
  8. CLONAZEPAM. [Concomitant]
     Active Substance: CLONAZEPAM
     Indication: ANXIETY
  9. CIMZIA [Suspect]
     Active Substance: CERTOLIZUMAB PEGOL
     Dosage: 200 MILLIGRAM, EV 15 DAYS
     Route: 058
     Dates: start: 20191115
  10. METHOTREXATE. [Concomitant]
     Active Substance: METHOTREXATE
     Indication: RHEUMATOID ARTHRITIS
     Dosage: UNK
     Dates: start: 2016
  11. SERTRALINE HYDROCHLORIDE. [Concomitant]
     Active Substance: SERTRALINE HYDROCHLORIDE
     Indication: ANXIETY
     Dosage: 50 MILLIGRAM, ONCE DAILY (QD)
     Route: 048
     Dates: start: 201909
  12. CLONAZEPAM. [Concomitant]
     Active Substance: CLONAZEPAM
     Indication: DEPRESSION
     Dosage: 2 MILLIGRAM, ONCE DAILY (QD)
     Route: 048
     Dates: start: 201909
  13. MIRA [MIRTAZAPINE] [Concomitant]
     Indication: PRODUCT USED FOR UNKNOWN INDICATION

REACTIONS (10)
  - Pyrexia [Recovered/Resolved]
  - Panic disorder [Unknown]
  - Injection site pain [Unknown]
  - Intervertebral disc protrusion [Recovering/Resolving]
  - Eye pain [Recovered/Resolved]
  - Rhinalgia [Recovered/Resolved]
  - Injection site discolouration [Recovered/Resolved]
  - Injection site swelling [Recovered/Resolved]
  - Arthralgia [Recovered/Resolved]
  - Headache [Recovered/Resolved]

NARRATIVE: CASE EVENT DATE: 2019
